FAERS Safety Report 16618618 (Version 1)
Quarter: 2019Q3

REPORT INFORMATION
  Report Type: Spontaneous
  Country: DE (occurrence: DE)
  Receive Date: 20190723
  Receipt Date: 20190723
  Transmission Date: 20191004
  Serious: Yes (Death, Hospitalization)
  Sender: FDA-Public Use
  Company Number: DE-TEVA-2019-DE-1080526

PATIENT
  Age: 68 Year
  Sex: Male
  Weight: 100 kg

DRUGS (11)
  1. ONDANSETRON [Concomitant]
     Active Substance: ONDANSETRON
     Dosage: 4 MG, NEED, TABLETS
     Route: 048
  2. PALLADON [Concomitant]
     Active Substance: HYDROMORPHONE
     Dosage: 1.3 MG, NEED, CAPSULES
     Route: 048
  3. CYCLOPHOSPHAMID [Suspect]
     Active Substance: CYCLOPHOSPHAMIDE
     Dosage: 600 MG / M2, SCHEME, SOLUTION FOR INJECTION / INFUSION
     Route: 042
  4. MOVICOL [Concomitant]
     Active Substance: POLYETHYLENE GLYCOL 3350\POTASSIUM CHLORIDE\SODIUM BICARBONATE\SODIUM CHLORIDE
     Dosage: 13.125 | 0.35 | 0.18 | 0.05 G, 1-0-0-0, BAG
     Route: 048
  5. DOXORUBICIN [Suspect]
     Active Substance: DOXORUBICIN
     Dosage: 30 MG / M2, SCHEME, SOLUTION FOR INJECTION / INFUSION
     Route: 042
  6. L-THYROXIN [Concomitant]
     Active Substance: LEVOTHYROXINE SODIUM
     Dosage: 75 MICROGRAM, 1-0-0-0, TABLETS
     Route: 048
  7. VINCRISTIN [Suspect]
     Active Substance: VINCRISTINE
     Dosage: 1.2 MG / M2, SCHEME, SOLUTION FOR INJECTION / INFUSION
     Route: 042
  8. MCP [Concomitant]
     Active Substance: METOCLOPRAMIDE HYDROCHLORIDE
     Dosage: 10 MG, 1-1-1-0, TABLETS
     Route: 048
  9. MIRTAZAPIN [Concomitant]
     Active Substance: MIRTAZAPINE
     Dosage: 15 MG, 0-0-0-1, TABLETS
     Route: 048
  10. JURNISTA 4MG [Concomitant]
     Dosage: 4 MG, 1-0-0-0, SUSTAINED-RELEASE TABLETS
     Route: 048
  11. NOVAMINSULFON [Concomitant]
     Active Substance: METAMIZOLE
     Dosage: 500 MG, 2-2-2-0, TABLETS
     Route: 048

REACTIONS (5)
  - Vomiting [Unknown]
  - Decreased appetite [Unknown]
  - General physical health deterioration [Unknown]
  - Weight decreased [Unknown]
  - Nausea [Unknown]
